FAERS Safety Report 5369469-2 (Version None)
Quarter: 2007Q2

REPORT INFORMATION
  Report Type: 
  Country: None (occurrence: None)
  Receive Date: 20070620
  Receipt Date: 20070605
  Transmission Date: 20071010
  Serious: Yes (Death)
  Sender: FDA-Public Use
  Company Number: S07-FRA-02578-01

PATIENT
  Age: 27 Year
  Sex: Female

DRUGS (2)
  1. ESCITALOPRAM [Suspect]
     Indication: MAJOR DEPRESSION
     Dosage: TABLET PO
     Route: 048
     Dates: start: 20070501
  2. ANTIPSYCHOTICS [Concomitant]

REACTIONS (1)
  - COMPLETED SUICIDE [None]
